FAERS Safety Report 7523586-7 (Version None)
Quarter: 2011Q2

REPORT INFORMATION
  Report Type: 
  Country: None (occurrence: None)
  Receive Date: 20110601
  Receipt Date: 20110601
  Transmission Date: 20111010
  Serious: No
  Sender: FDA-Public Use
  Company Number: None

PATIENT
  Age: 67 Year
  Sex: Male
  Weight: 90.2658 kg

DRUGS (1)
  1. JALYN [Suspect]
     Indication: BENIGN PROSTATIC HYPERPLASIA
     Dosage: ONE BEFORE BED TIME ONE PER NIGT. BUCCAL
     Route: 002
     Dates: start: 20110330, end: 20110415

REACTIONS (3)
  - CONDITION AGGRAVATED [None]
  - NOCTURIA [None]
  - BENIGN PROSTATIC HYPERPLASIA [None]
